FAERS Safety Report 19247952 (Version 3)
Quarter: 2021Q3

REPORT INFORMATION
  Report Type: Spontaneous
  Country: US (occurrence: US)
  Receive Date: 20210512
  Receipt Date: 20210718
  Transmission Date: 20211014
  Serious: Yes (Hospitalization)
  Sender: FDA-Public Use
  Company Number: NVSC2021US097280

PATIENT
  Age: 17 Year
  Sex: Female
  Weight: 67 kg

DRUGS (3)
  1. ADAKVEO [Suspect]
     Active Substance: CRIZANLIZUMAB-TMCA
     Indication: SICKLE CELL DISEASE
     Dosage: 5 MG/KG, QMO
     Route: 042
  2. ADAKVEO [Suspect]
     Active Substance: CRIZANLIZUMAB-TMCA
     Dosage: 320 MG
     Route: 042
     Dates: start: 20210527
  3. ADAKVEO [Suspect]
     Active Substance: CRIZANLIZUMAB-TMCA
     Dosage: 320 MG (32 ML (100 ML TOTAL VOLUME) AT A RATE OF 3.3 ML/MIN FOR 30 MIN)
     Route: 042
     Dates: start: 20200918, end: 20200918

REACTIONS (1)
  - Arthralgia [Recovered/Resolved]

NARRATIVE: CASE EVENT DATE: 20200918
